FAERS Safety Report 24718781 (Version 1)
Quarter: 2024Q4

REPORT INFORMATION
  Report Type: Spontaneous
  Country: US (occurrence: US)
  Receive Date: 20241210
  Receipt Date: 20241210
  Transmission Date: 20250115
  Serious: Yes (Death, Hospitalization)
  Sender: MYLAN
  Company Number: US-MYLANLABS-2024M1109760

PATIENT
  Sex: Male

DRUGS (14)
  1. PREDNISONE [Suspect]
     Active Substance: PREDNISONE
     Indication: Immunosuppressant drug therapy
     Dosage: UNK
     Route: 065
  2. PREDNISONE [Suspect]
     Active Substance: PREDNISONE
     Indication: Prophylaxis against transplant rejection
  3. TACROLIMUS [Suspect]
     Active Substance: TACROLIMUS
     Indication: Immunosuppressant drug therapy
     Dosage: UNK
     Route: 065
  4. TACROLIMUS [Suspect]
     Active Substance: TACROLIMUS
     Indication: Prophylaxis against transplant rejection
  5. MYCOPHENOLATE MOFETIL [Suspect]
     Active Substance: MYCOPHENOLATE MOFETIL
     Indication: Immunosuppressant drug therapy
     Dosage: UNK
     Route: 065
  6. MYCOPHENOLATE MOFETIL [Suspect]
     Active Substance: MYCOPHENOLATE MOFETIL
     Indication: Prophylaxis against transplant rejection
  7. CIDOFOVIR [Suspect]
     Active Substance: CIDOFOVIR
     Indication: Monkeypox
     Dosage: UNK
     Route: 042
  8. CIDOFOVIR [Suspect]
     Active Substance: CIDOFOVIR
     Indication: Condition aggravated
  9. VANCOMYCIN [Suspect]
     Active Substance: VANCOMYCIN
     Indication: Monkeypox
     Dosage: UNK
     Route: 042
  10. VANCOMYCIN [Suspect]
     Active Substance: VANCOMYCIN
     Indication: Condition aggravated
  11. TECOVIRIMAT [Suspect]
     Active Substance: TECOVIRIMAT
     Indication: Monkeypox
     Dosage: UNK
     Route: 042
  12. TECOVIRIMAT [Suspect]
     Active Substance: TECOVIRIMAT
     Indication: Condition aggravated
  13. CEFEPIME [Suspect]
     Active Substance: CEFEPIME HYDROCHLORIDE
     Indication: Monkeypox
     Dosage: UNK
     Route: 042
  14. CEFEPIME [Suspect]
     Active Substance: CEFEPIME HYDROCHLORIDE
     Indication: Condition aggravated

REACTIONS (6)
  - Monkeypox [Fatal]
  - Condition aggravated [Fatal]
  - Shock [Fatal]
  - Pneumonitis [Fatal]
  - Drug ineffective [Fatal]
  - Off label use [Unknown]
